FAERS Safety Report 9306299 (Version 2)
Quarter: 2013Q2

REPORT INFORMATION
  Report Type: Spontaneous
  Country: US (occurrence: None)
  Receive Date: 20130516
  Receipt Date: 20130620
  Transmission Date: 20140414
  Serious: Yes (Hospitalization, Other)
  Sender: FDA-Public Use
  Company Number: 2013PROUSA02790

PATIENT
  Age: 77 Year
  Sex: Male
  Weight: 78.9 kg

DRUGS (15)
  1. PROVENGE [Suspect]
     Indication: PROSTATE CANCER METASTATIC
     Dosage: 250ML SINGLE INTRAVENOUS
     Route: 042
     Dates: start: 20130412, end: 20130412
  2. INSULIN GLARGINE (INSULIN GLARGINE) [Concomitant]
  3. ACETAMINOPHEN (PARACETAMOL) [Concomitant]
  4. AMITRIPTYLINE HCL (AMITRIPTYLINE HYDROCHLORIDE) [Concomitant]
  5. ASPIRIN (ACETYLSALICYLIC ACID) [Concomitant]
  6. CALCIUM +D (CALCIUM CARBONATE, COLECALCIFEROL) [Concomitant]
  7. CREON (PANCREATIN) [Concomitant]
  8. FISH OIL (FISH OIL) [Concomitant]
  9. NEXIUM (ESOMEPRAZOLE SODIUM) [Concomitant]
  10. THIORIDAZINE HYDROCHLORIDE (THIORIDAZINE HYDROCHLORIDE) [Concomitant]
  11. EFFEXOR XR (VENLAFAXINE HYDROCHLORIDE) (75 MILLIGRAM, CAPSULE) (VENLAFAXINE HYDROCHLORIDE) [Concomitant]
  12. VITAMIN D3 (COLECALCIFEROL) [Concomitant]
  13. HUMULIN R (INSULIN HUMAN) [Concomitant]
  14. SIMVASTATIN (SIMVASTATIN) [Concomitant]
  15. DENOSUMAB (DENOSUMAB) (RANMARK)) [Concomitant]

REACTIONS (18)
  - Myocardial infarction [None]
  - Supraventricular tachycardia [None]
  - Hypotension [None]
  - Back pain [None]
  - Ventricular tachycardia [None]
  - Chronic obstructive pulmonary disease [None]
  - Condition aggravated [None]
  - Anaemia [None]
  - Diabetes mellitus [None]
  - Coronary artery occlusion [None]
  - Hypoxia [None]
  - Pleural effusion [None]
  - Arteriosclerosis [None]
  - Retroperitoneal lymphadenopathy [None]
  - Metastasis [None]
  - Mitral valve incompetence [None]
  - Lung infiltration [None]
  - Acute myocardial infarction [None]
